FAERS Safety Report 7935470-5 (Version None)
Quarter: 2011Q4

REPORT INFORMATION
  Report Type: 
  Country: None (occurrence: None)
  Receive Date: 20111123
  Receipt Date: 20111114
  Transmission Date: 20120403
  Serious: Yes (Hospitalization)
  Sender: FDA-Public Use
  Company Number: US-US-EMD SERONO, INC.-7088833

PATIENT
  Sex: Female

DRUGS (3)
  1. AMANTADINE HCL [Concomitant]
  2. REBIF [Suspect]
     Indication: MULTIPLE SCLEROSIS
     Route: 058
     Dates: start: 20110915
  3. REBIF [Suspect]
     Route: 058

REACTIONS (5)
  - PYREXIA [None]
  - MULTIPLE SCLEROSIS RELAPSE [None]
  - DIARRHOEA [None]
  - VOMITING [None]
  - CHILLS [None]
